FAERS Safety Report 10178031 (Version 1)
Quarter: 2014Q2

REPORT INFORMATION
  Report Type: Spontaneous
  Country: US (occurrence: US)
  Receive Date: 20140517
  Receipt Date: 20140517
  Transmission Date: 20141212
  Serious: Yes (Hospitalization, Other)
  Sender: FDA-Public Use
  Company Number: US-ACCORD-023656

PATIENT
  Age: 2 Week
  Sex: Female
  Weight: 2.05 kg

DRUGS (1)
  1. METHYLDOPA [Suspect]
     Indication: GESTATIONAL HYPERTENSION
     Dosage: RECEIVED BY MOTHER AT 30 WEEKS^ GESTATION
     Route: 064

REACTIONS (9)
  - Cardiac failure [Recovered/Resolved]
  - Tachycardia [Recovered/Resolved]
  - Drug withdrawal syndrome [Recovered/Resolved]
  - Foetal exposure during pregnancy [Unknown]
  - Respiratory distress [Recovered/Resolved]
  - Hyperbilirubinaemia [Recovered/Resolved]
  - Hypoglycaemia [Recovered/Resolved]
  - Hypertransaminasaemia [Recovered/Resolved]
  - Hypertensive crisis [Recovered/Resolved]
